FAERS Safety Report 12471930 (Version 2)
Quarter: 2016Q4

REPORT INFORMATION
  Report Type: Spontaneous
  Country: US (occurrence: US)
  Receive Date: 20160616
  Receipt Date: 20161013
  Transmission Date: 20170207
  Serious: Yes (Hospitalization, Other)
  Sender: FDA-Public Use
  Company Number: US-BAUSCH-BL-2015-022927

PATIENT
  Sex: Female
  Weight: 66.74 kg

DRUGS (3)
  1. RELISTOR [Suspect]
     Active Substance: METHYLNALTREXONE BROMIDE
     Route: 058
     Dates: start: 2015, end: 2015
  2. RELISTOR [Suspect]
     Active Substance: METHYLNALTREXONE BROMIDE
     Indication: CONSTIPATION
     Route: 058
  3. FENTANYL TRANSDERMAL SYSTEM [Concomitant]
     Active Substance: FENTANYL
     Indication: PAIN
     Route: 062

REACTIONS (10)
  - Device issue [Not Recovered/Not Resolved]
  - Road traffic accident [Unknown]
  - Sternal fracture [Unknown]
  - Fibula fracture [Unknown]
  - Injection site oedema [Not Recovered/Not Resolved]
  - Unevaluable event [Not Recovered/Not Resolved]
  - Rib fracture [Unknown]
  - Tibia fracture [Unknown]
  - Meniscus injury [Unknown]
  - Injection site pain [Recovered/Resolved]

NARRATIVE: CASE EVENT DATE: 2015
